FAERS Safety Report 10298917 (Version 2)
Quarter: 2014Q3

REPORT INFORMATION
  Report Type: Spontaneous
  Country: US (occurrence: US)
  Receive Date: 20140711
  Receipt Date: 20140711
  Transmission Date: 20150326
  Serious: Yes (Other)
  Sender: FDA-Public Use
  Company Number: PHHY2014US079586

PATIENT
  Age: 71 Year
  Sex: Female

DRUGS (12)
  1. BACLOFEN INTRATHECAL [Suspect]
     Active Substance: BACLOFEN
     Dosage: DOSE WAS INCREASED FROM 174.8MCG/DAY TO 195.7MCG/DAY(1100UG/ML)
     Route: 037
     Dates: start: 20140305
  2. COQ10 [Suspect]
     Active Substance: UBIDECARENONE
     Dosage: 200 MG, BID
  3. COZAAR [Suspect]
     Active Substance: LOSARTAN POTASSIUM
     Dosage: 100 MG, DAILY
  4. MULTI-VIT [Suspect]
     Active Substance: VITAMINS
     Dosage: 1 DF, DAILY
  5. TENORMIN [Suspect]
     Active Substance: ATENOLOL
     Dosage: 25 MG, DAILY
  6. VALIUM [Suspect]
     Active Substance: DIAZEPAM
     Dosage: 5 MG, Q8H
  7. ACETYLSALICYLIC ACID [Suspect]
     Active Substance: ASPIRIN
     Dosage: 81 MG, DAILY
  8. BACLOFEN INTRATHECAL [Suspect]
     Active Substance: BACLOFEN
     Indication: MUSCLE SPASTICITY
     Dosage: 74.95 UG, PER DAY (500UG/ML)
     Route: 037
     Dates: start: 20110111
  9. OMEGA-3 FATTY ACIDS [Suspect]
     Active Substance: OMEGA-3 FATTY ACIDS
     Dosage: UNK UKN, TID
  10. ALPHA LIPOIC ACID [Suspect]
     Active Substance: .ALPHA.-LIPOIC ACID
     Dosage: 300 MG, UNK
  11. METFORMIN [Suspect]
     Active Substance: METFORMIN HYDROCHLORIDE
     Dosage: 1000 MG, BID
  12. CHROMIUM [Suspect]
     Active Substance: CHROMIC CHLORIDE\CHROMIUM
     Dosage: 200 UG, DAILY

REACTIONS (3)
  - Cystitis [Unknown]
  - Infection [Unknown]
  - Clostridium difficile infection [Unknown]

NARRATIVE: CASE EVENT DATE: 20110111
